FAERS Safety Report 9426246 (Version 1)
Quarter: 2013Q3

REPORT INFORMATION
  Report Type: Report from Study
  Country: IN (occurrence: IN)
  Receive Date: 20130730
  Receipt Date: 20130730
  Transmission Date: 20140515
  Serious: Yes (Other)
  Sender: FDA-Public Use
  Company Number: IN-ROCHE-1254474

PATIENT
  Age: 53 Year
  Sex: Female
  Weight: 50 kg

DRUGS (1)
  1. EXXURA [Suspect]
     Indication: HEPATITIS C
     Route: 058
     Dates: start: 20130401, end: 20130701

REACTIONS (1)
  - Cardiac failure [Unknown]
